FAERS Safety Report 10278103 (Version 1)
Quarter: 2014Q3

REPORT INFORMATION
  Report Type: Report from Study
  Country: BR (occurrence: BR)
  Receive Date: 20140704
  Receipt Date: 20140704
  Transmission Date: 20150326
  Serious: Yes (Other)
  Sender: FDA-Public Use
  Company Number: BR-ABBVIE-14P-020-1254484-00

PATIENT
  Age: 53 Year
  Sex: Male
  Weight: 62 kg

DRUGS (6)
  1. HUMIRA [Suspect]
     Active Substance: ADALIMUMAB
     Indication: RHEUMATOID ARTHRITIS
     Route: 058
     Dates: start: 201312
  2. ARAVA [Concomitant]
     Active Substance: LEFLUNOMIDE
     Indication: ARTHRITIS
     Dosage: IN THE MORNING
     Route: 048
     Dates: start: 2009
  3. VALSARTAN. [Concomitant]
     Active Substance: VALSARTAN
     Indication: HYPERTENSION
     Dosage: IN THE MORNING
     Route: 048
     Dates: start: 2012
  4. HUMIRA [Suspect]
     Active Substance: ADALIMUMAB
     Route: 058
     Dates: start: 20140430
  5. SELOZOK [Concomitant]
     Active Substance: METOPROLOL SUCCINATE
     Indication: HYPERTENSION
     Dosage: IN THE MORNING
     Route: 048
     Dates: start: 2012
  6. CALCORT [Concomitant]
     Active Substance: DEFLAZACORT
     Indication: ARTHRITIS
     Dosage: IN THE MORNING
     Route: 048

REACTIONS (7)
  - Hypersensitivity [Recovered/Resolved]
  - Arthropathy [Recovering/Resolving]
  - Drug ineffective [Not Recovered/Not Resolved]
  - Cataract [Recovering/Resolving]
  - Goitre [Not Recovered/Not Resolved]
  - Foot deformity [Recovering/Resolving]
  - Pruritus [Recovered/Resolved]

NARRATIVE: CASE EVENT DATE: 201405
